FAERS Safety Report 8188699-8 (Version None)
Quarter: 2012Q1

REPORT INFORMATION
  Report Type: 
  Country: None (occurrence: None)
  Receive Date: 20120306
  Receipt Date: 20120229
  Transmission Date: 20120608
  Serious: Yes (Other)
  Sender: FDA-Public Use
  Company Number: DE-JNJFOC-20111111496

PATIENT
  Sex: Male

DRUGS (4)
  1. INDOMETHACIN [Concomitant]
  2. XARELTO [Suspect]
     Indication: THROMBOSIS PROPHYLAXIS
     Route: 048
  3. TORSEMIDE [Concomitant]
  4. XARELTO [Suspect]
     Indication: HIP ARTHROPLASTY
     Route: 048

REACTIONS (2)
  - HEPATIC LESION [None]
  - HEPATIC ENZYME INCREASED [None]
